FAERS Safety Report 16769745 (Version 1)
Quarter: 2019Q3

REPORT INFORMATION
  Report Type: Spontaneous
  Country: US (occurrence: US)
  Receive Date: 20190904
  Receipt Date: 20190904
  Transmission Date: 20191005
  Serious: Yes (Hospitalization, Other)
  Sender: FDA-Public Use
  Company Number: US-AMGEN-USASP2019138894

PATIENT
  Age: 45 Year
  Sex: Female

DRUGS (6)
  1. ETANERCEPT [Suspect]
     Active Substance: ETANERCEPT
     Indication: SPONDYLOARTHROPATHY
     Dosage: UNK
     Route: 065
  2. SULFASALAZINE. [Concomitant]
     Active Substance: SULFASALAZINE
     Dosage: UNK
  3. METHOTREXATE. [Concomitant]
     Active Substance: METHOTREXATE
     Dosage: UNK
  4. ADALIMUMAB [Concomitant]
     Active Substance: ADALIMUMAB
     Dosage: UNK
  5. HYDROXYCHLOROQUINE [Concomitant]
     Active Substance: HYDROXYCHLOROQUINE
     Dosage: UNK
  6. GOLIMUMAB [Concomitant]
     Active Substance: GOLIMUMAB
     Dosage: UNK

REACTIONS (7)
  - Hemiparesis [Unknown]
  - Encephalitis [Unknown]
  - Generalised tonic-clonic seizure [Unknown]
  - Spondyloarthropathy [Unknown]
  - Meningitis aseptic [Unknown]
  - Rocky mountain spotted fever [Recovered/Resolved]
  - Off label use [Unknown]
